FAERS Safety Report 17723629 (Version 1)
Quarter: 2020Q2

REPORT INFORMATION
  Report Type: Spontaneous
  Country: US (occurrence: US)
  Receive Date: 20200429
  Receipt Date: 20200429
  Transmission Date: 20200714
  Serious: Yes (Hospitalization)
  Sender: FDA-Public Use
  Company Number: None

PATIENT
  Age: 37 Year
  Sex: Female

DRUGS (12)
  1. DIVALPROEX [Concomitant]
     Active Substance: DIVALPROEX SODIUM
  2. METOPROLOL SUC TAB [Concomitant]
  3. METHYLPHENIDATE. [Concomitant]
     Active Substance: METHYLPHENIDATE
  4. ATORVASTATIN [Concomitant]
     Active Substance: ATORVASTATIN
  5. DULOXETINE. [Concomitant]
     Active Substance: DULOXETINE
  6. LEVOMEFOLATE [Concomitant]
  7. MONTELUKAST [Concomitant]
     Active Substance: MONTELUKAST SODIUM
  8. NUCALA [Suspect]
     Active Substance: MEPOLIZUMAB
     Indication: ASTHMA
     Dosage: ?          OTHER FREQUENCY:MONTHLY;?
     Route: 058
     Dates: start: 20171113
  9. CEPHALEXIN. [Concomitant]
     Active Substance: CEPHALEXIN
  10. AZELASTINE SPR [Concomitant]
  11. SOLIFENACIN TAB [Concomitant]
  12. AMLODIPINE [Concomitant]
     Active Substance: AMLODIPINE BESYLATE

REACTIONS (4)
  - Product storage error [None]
  - Liver disorder [None]
  - Kidney infection [None]
  - Cystitis [None]

NARRATIVE: CASE EVENT DATE: 20200401
